FAERS Safety Report 14910622 (Version 2)
Quarter: 2018Q2

REPORT INFORMATION
  Report Type: Report from Study
  Country: CA (occurrence: CA)
  Receive Date: 20180517
  Receipt Date: 20180612
  Transmission Date: 20180711
  Serious: Yes (Other)
  Sender: FDA-Public Use
  Company Number: CA-OTSUKA-2015_008078

PATIENT
  Age: 61 Year
  Sex: Female
  Weight: 77.9 kg

DRUGS (41)
  1. TOLVAPTAN [Suspect]
     Active Substance: TOLVAPTAN
     Dosage: 30 MG, QD (IN EVENING)
     Route: 048
     Dates: start: 20151219, end: 20160225
  2. TOLVAPTAN [Suspect]
     Active Substance: TOLVAPTAN
     Dosage: 15 MG, QD (IN EVENING)
     Route: 048
     Dates: start: 20160226, end: 20180530
  3. TOLVAPTAN [Suspect]
     Active Substance: TOLVAPTAN
     Dosage: 15 MG, QD (IN EVENING) (THERAPY DURATION 133 DAYS)
     Route: 048
  4. CLONIDINE. [Suspect]
     Active Substance: CLONIDINE
     Dosage: 1 MG, TID
     Route: 062
  5. TOLVAPTAN [Suspect]
     Active Substance: TOLVAPTAN
     Dosage: 45 MG, QD (IN MORNING) (THERAPY DURATION 120 DAYS)
     Route: 065
  6. TOLVAPTAN [Suspect]
     Active Substance: TOLVAPTAN
     Dosage: 45 MG, QD (IN MORNING) (THERAPY DURATION 133 DAYS)
     Route: 048
  7. CRESTOR [Concomitant]
     Active Substance: ROSUVASTATIN CALCIUM
     Dosage: 5 MG, QD  (1 ODX 90D QTY:90)
     Route: 048
     Dates: start: 20160517
  8. TOLVAPTAN [Suspect]
     Active Substance: TOLVAPTAN
     Dosage: 15 MG, QD (IN EVENING)
     Route: 048
     Dates: start: 20150808, end: 20151218
  9. TOLVAPTAN [Suspect]
     Active Substance: TOLVAPTAN
     Dosage: 45 MG, QD (IN MORNING)
     Route: 048
  10. ONE ALPHA [Concomitant]
     Active Substance: ALFACALCIDOL
     Dosage: 0.25 ?G, BID (2 OD M.W.F QTY:30)
     Route: 065
     Dates: start: 20150721
  11. TOLVAPTAN [Suspect]
     Active Substance: TOLVAPTAN
     Indication: CONGENITAL CYSTIC KIDNEY DISEASE
     Dosage: 45 MG, QD (IN MORNING)
     Route: 048
     Dates: start: 20150808, end: 20151218
  12. TOLVAPTAN [Suspect]
     Active Substance: TOLVAPTAN
     Dosage: 60 MG, QD (IN MORNING)
     Route: 048
     Dates: start: 20151219, end: 20160225
  13. TOLVAPTAN [Suspect]
     Active Substance: TOLVAPTAN
     Dosage: 15 MG, QD (IN EVENING)
     Route: 065
     Dates: start: 20150721, end: 20151117
  14. TOLVAPTAN [Suspect]
     Active Substance: TOLVAPTAN
     Dosage: 15 MG, QD  (IN EVENING) (THERAPY DURATION 120 DAYS)
     Route: 065
  15. TOLVAPTAN [Suspect]
     Active Substance: TOLVAPTAN
     Dosage: 45 MG, QD (IN MORNING)
     Route: 048
  16. TOLVAPTAN [Suspect]
     Active Substance: TOLVAPTAN
     Dosage: 45 MG, QD (IN MORNING)
     Route: 048
  17. VASOTEC [Concomitant]
     Active Substance: ENALAPRIL MALEATE
     Indication: BLOOD PRESSURE ABNORMAL
     Dosage: 10 MG, QD (1ODX90D QTY:90)
     Route: 048
     Dates: start: 20141211
  18. CRESTOR [Concomitant]
     Active Substance: ROSUVASTATIN CALCIUM
     Dosage: 5 MG, QD  (1 ODX 90D QTY:90)
     Route: 048
     Dates: start: 20151117
  19. ONE ALPHA [Concomitant]
     Active Substance: ALFACALCIDOL
     Dosage: 0.25 ?G, BID (2 OD M.W.F QTY:30)
     Route: 065
     Dates: start: 20151117
  20. VITAMIN D [Concomitant]
     Active Substance: CHOLECALCIFEROL
     Indication: BLOOD CALCIUM DECREASED
     Dosage: 2 DF, TIW
     Route: 065
  21. TOLVAPTAN [Suspect]
     Active Substance: TOLVAPTAN
     Dosage: 30 MG, QD
     Route: 048
  22. VASOTEC [Concomitant]
     Active Substance: ENALAPRIL MALEATE
     Dosage: 10 MG, QD (1ODX90D QTY:90)
     Route: 048
     Dates: start: 20141215
  23. VASOTEC [Concomitant]
     Active Substance: ENALAPRIL MALEATE
     Dosage: 10 MG, QD (1ODX90D QTY:90
     Route: 048
     Dates: start: 20160517
  24. CRESTOR [Concomitant]
     Active Substance: ROSUVASTATIN CALCIUM
     Dosage: 5 MG, QD  (1 ODX 90D QTY:90)
     Route: 048
     Dates: start: 20150721
  25. ONE ALPHA [Concomitant]
     Active Substance: ALFACALCIDOL
     Indication: PROPHYLAXIS
     Dosage: 0.25 ?G, BID (2 OD M.W.F QTY:30)
     Route: 065
     Dates: start: 20141215
  26. TOLVAPTAN [Suspect]
     Active Substance: TOLVAPTAN
     Dosage: 15 MG, QD (IN EVENING)
     Route: 048
  27. TOLVAPTAN [Suspect]
     Active Substance: TOLVAPTAN
     Dosage: 15 MG, QD (IN EVENING)
     Route: 048
  28. VASOTEC [Concomitant]
     Active Substance: ENALAPRIL MALEATE
     Dosage: 10 MG, QD (1ODX90D QTY:90)
     Route: 048
     Dates: start: 20150721
  29. VASOTEC [Concomitant]
     Active Substance: ENALAPRIL MALEATE
     Dosage: 10 MG, QD (1ODX90D QTY:90
     Route: 048
     Dates: start: 20151117
  30. ONE ALPHA [Concomitant]
     Active Substance: ALFACALCIDOL
     Dosage: 0.25 ?G, BID (2 OD M.W.F QTY:30)
     Route: 065
     Dates: start: 20160517
  31. TOLVAPTAN [Suspect]
     Active Substance: TOLVAPTAN
     Dosage: 45 MG, QD (IN MORNING)
     Route: 048
     Dates: start: 20160226, end: 20180530
  32. TOLVAPTAN [Suspect]
     Active Substance: TOLVAPTAN
     Dosage: 15 MG, QD (IN EVENING)
     Route: 048
  33. TOLVAPTAN [Suspect]
     Active Substance: TOLVAPTAN
     Dosage: 60 MG, QD (THERAPY DURATION 69 DAYS)
     Route: 048
  34. CRESTOR [Concomitant]
     Active Substance: ROSUVASTATIN CALCIUM
     Indication: BLOOD CHOLESTEROL ABNORMAL
     Dosage: 5 MG, QD (1 ODX 90D QTY:90)
     Route: 048
     Dates: start: 20141211
  35. CRESTOR [Concomitant]
     Active Substance: ROSUVASTATIN CALCIUM
     Dosage: 5 MG, QD  (1 ODX 90D QTY:90)
     Route: 048
     Dates: start: 20150416
  36. CRESTOR [Concomitant]
     Active Substance: ROSUVASTATIN CALCIUM
     Dosage: UNK
     Route: 065
  37. ENALAPRIL [Concomitant]
     Active Substance: ENALAPRIL
     Indication: PRODUCT USED FOR UNKNOWN INDICATION
     Dosage: 10 MG, QD
     Route: 065
  38. TOLVAPTAN [Suspect]
     Active Substance: TOLVAPTAN
     Dosage: 45 MG, QD (IN MORNING)
     Route: 065
     Dates: start: 20150721, end: 20151117
  39. CLONIDINE. [Suspect]
     Active Substance: CLONIDINE
     Indication: BLOOD PRESSURE ABNORMAL
     Dosage: 0.025, TID
     Route: 062
  40. CRESTOR [Concomitant]
     Active Substance: ROSUVASTATIN CALCIUM
     Dosage: 5 MG, QD  (1 ODX 90D QTY:90)
     Route: 048
     Dates: start: 20141215
  41. ONE ALPHA [Concomitant]
     Active Substance: ALFACALCIDOL
     Dosage: 0.25 ?G, BID (2 OD M.W.F QTY:30)
     Route: 065
     Dates: start: 20150416

REACTIONS (26)
  - Nocturia [Recovered/Resolved]
  - Blood sodium decreased [Unknown]
  - Disorientation [Recovered/Resolved]
  - Emotional disorder [Unknown]
  - Retching [Recovered/Resolved]
  - Somnolence [Recovered/Resolved]
  - Gastrooesophageal reflux disease [Recovered/Resolved]
  - Musculoskeletal discomfort [Recovered/Resolved]
  - Hypertension [Recovered/Resolved]
  - Hot flush [Recovered/Resolved]
  - Abdominal pain [Recovered/Resolved]
  - Abdominal hernia [Unknown]
  - Micturition urgency [Unknown]
  - Memory impairment [Unknown]
  - Vomiting [Unknown]
  - Glomerular filtration rate decreased [Recovered/Resolved]
  - Polydipsia [Recovered/Resolved]
  - Dry mouth [Unknown]
  - Discomfort [Recovered/Resolved]
  - Feeling abnormal [Recovered/Resolved]
  - Renal impairment [Recovered/Resolved]
  - Syncope [Recovered/Resolved]
  - Pollakiuria [Recovered/Resolved]
  - Dehydration [Recovered/Resolved]
  - Abdominal distension [Unknown]
  - Polyuria [Not Recovered/Not Resolved]

NARRATIVE: CASE EVENT DATE: 2015
